FAERS Safety Report 9314236 (Version 1)
Quarter: 2013Q2

REPORT INFORMATION
  Report Type: Spontaneous
  Country: DK (occurrence: None)
  Receive Date: 20130522
  Receipt Date: 20130522
  Transmission Date: 20140414
  Serious: Yes (Other)
  Sender: FDA-Public Use
  Company Number: FK201301572

PATIENT
  Age: 45 Year
  Sex: Female

DRUGS (4)
  1. PACLITAXEL [Suspect]
     Indication: BREAST CANCER
  2. TAMOXIFEN [Suspect]
     Indication: BREAST CANCER
  3. DOCETAXEL [Suspect]
     Indication: BREAST CANCER
  4. VINORELBINE [Suspect]
     Indication: BREAST CANCER

REACTIONS (3)
  - Disease progression [None]
  - Neutropenia [None]
  - Breast cancer [None]
